FAERS Safety Report 10181955 (Version 1)
Quarter: 2014Q2

REPORT INFORMATION
  Report Type: Report from Study
  Country: US (occurrence: US)
  Receive Date: 20140519
  Receipt Date: 20140519
  Transmission Date: 20141212
  Serious: Yes (Life-Threatening, Hospitalization)
  Sender: FDA-Public Use
  Company Number: US-TEVA-482487USA

PATIENT
  Age: 1 Year
  Sex: Male
  Weight: 8.9 kg

DRUGS (17)
  1. LESTAURTINIB [Suspect]
     Indication: ACUTE LYMPHOCYTIC LEUKAEMIA
     Dosage: LAST DOSE PRIOR TO EVENT 12-MAY-2014
     Dates: start: 20130726
  2. DAUNORUBICIN [Suspect]
     Indication: ACUTE LYMPHOCYTIC LEUKAEMIA
  3. ETOPOSIDE [Suspect]
     Indication: ACUTE LYMPHOCYTIC LEUKAEMIA
     Dosage: LAST DOSE PRIOR TO EVENT 05-APR-2014
     Dates: start: 20130726
  4. FOLINIC ACID [Suspect]
     Indication: ACUTE LYMPHOCYTIC LEUKAEMIA
  5. METHOTREXATE [Suspect]
     Indication: ACUTE LYMPHOCYTIC LEUKAEMIA
     Dosage: LAST DOSE PRIOR TO EVENT 24-FEB-2014
     Dates: start: 20130726
  6. MERCAPTOPURINE [Suspect]
     Dosage: LAST DOSE PRIOR TO EVENT 09-MAR-2014
     Dates: start: 20130726
  7. VINCRISTINE [Suspect]
     Indication: ACUTE LYMPHOCYTIC LEUKAEMIA
     Dosage: LAST DOSE PRIOR TO EVENT 24-FEB-2014
     Dates: start: 20130726
  8. CYCLOPHOSPHAMIDE [Suspect]
     Indication: ACUTE LYMPHOCYTIC LEUKAEMIA
     Dosage: LAST DOSE PRIOR TO EVENT 05-APR-2014
     Dates: start: 20130726
  9. CYTARABINE [Suspect]
     Indication: ACUTE LYMPHOCYTIC LEUKAEMIA
     Dosage: LAST DOSE PRIOR TO EVENT 30-APR-2014
     Dates: start: 20130726
  10. DEXAMETHASONE [Suspect]
     Indication: ACUTE LYMPHOCYTIC LEUKAEMIA
     Dosage: LAST DOSE PRIOR TO EVENT 28-FEB-2014
     Dates: start: 20130726
  11. L-ASPARAGINASE [Suspect]
     Indication: ACUTE LYMPHOCYTIC LEUKAEMIA
  12. PEG-L-ASPARAGINASE [Suspect]
     Indication: ACUTE LYMPHOCYTIC LEUKAEMIA
     Dosage: LAST DOSE PRIOR TO EVENT 29-APR-2014
     Dates: start: 20130726
  13. PREDNISONE [Suspect]
     Indication: ACUTE LYMPHOCYTIC LEUKAEMIA
  14. BACTRIM [Suspect]
     Indication: ACUTE LYMPHOCYTIC LEUKAEMIA
  15. GRANULOCYTE COLONY-STIMULATING FACTOR NOS [Suspect]
  16. MICAFUNGIN [Suspect]
     Indication: ACUTE LYMPHOCYTIC LEUKAEMIA
  17. HYDROCORTISONE [Suspect]
     Dosage: LAST DOSE PRIOR TO START OF EVENT 24-FEB-2014

REACTIONS (1)
  - Sepsis [Recovering/Resolving]
